FAERS Safety Report 14859024 (Version 3)
Quarter: 2023Q2

REPORT INFORMATION
  Report Type: Spontaneous
  Country: US (occurrence: US)
  Receive Date: 20180508
  Receipt Date: 20230622
  Transmission Date: 20230721
  Serious: Yes (Disabling)
  Sender: FDA-Public Use
  Company Number: US-TEVA-817080USA

PATIENT
  Age: 61 Year
  Sex: Female
  Weight: 90.7 kg

DRUGS (12)
  1. DOCETAXEL [Suspect]
     Active Substance: DOCETAXEL
     Indication: Invasive ductal breast carcinoma
     Dosage: DOSAGE: 75 MG/M2, NO OF CYCLES: 04, FREQUENCY: EVERY 3 WEEKS
     Route: 042
     Dates: start: 20140317, end: 20140428
  2. DOCETAXEL [Suspect]
     Active Substance: DOCETAXEL
     Indication: Invasive ductal breast carcinoma
     Dosage: DOSAGE: 75 MG/M2, NO OF CYCLES: 04, FREQUENCY: EVERY 3 WEEKS
     Route: 042
     Dates: start: 20140317, end: 20140428
  3. DOCETAXEL [Suspect]
     Active Substance: DOCETAXEL
     Dosage: DOSAGE: 75 MG/M2, NO OF CYCLES: 04, FREQUENCY: EVERY 3 WEEKS
     Route: 042
     Dates: start: 20140317, end: 20140428
  4. CYTOXAN [Concomitant]
     Active Substance: CYCLOPHOSPHAMIDE
     Indication: Invasive ductal breast carcinoma
     Dosage: DOSAGE: 600 MG/M2, NO OF CYCLES: 04, FREQUENCY: EVERY 3 WEEKS
     Route: 042
     Dates: start: 20140317, end: 20140428
  5. FLONASE [Concomitant]
     Active Substance: FLUTICASONE PROPIONATE
     Indication: Product used for unknown indication
     Dosage: ONGOING
     Route: 065
     Dates: start: 2009
  6. THIORIDAZINE [Concomitant]
     Active Substance: THIORIDAZINE
     Indication: Product used for unknown indication
     Route: 065
     Dates: start: 2009
  7. ATARAX [Concomitant]
     Active Substance: HYDROXYZINE HYDROCHLORIDE
     Indication: Product used for unknown indication
     Dosage: ONE TIME ONLY
     Route: 048
     Dates: start: 20140317
  8. DECADRON [Concomitant]
     Active Substance: DEXAMETHASONE
     Indication: Product used for unknown indication
     Dosage: ONE TIME ONLY
     Route: 042
  9. ALOXI [Concomitant]
     Active Substance: PALONOSETRON HYDROCHLORIDE
     Indication: Product used for unknown indication
     Route: 042
  10. DIPRIVAN [Concomitant]
     Active Substance: PROPOFOL
     Indication: Product used for unknown indication
     Dosage: 200 MG/20 ML
     Route: 042
     Dates: start: 20131104
  11. METHYLENE BLUE [Concomitant]
     Active Substance: METHYLENE BLUE
     Indication: Product used for unknown indication
     Dosage: 1% 10 ML
     Route: 042
     Dates: start: 20131104
  12. ZOFRAN [Concomitant]
     Active Substance: ONDANSETRON HYDROCHLORIDE
     Indication: Product used for unknown indication
     Dosage: 40 MG/20 ML
     Dates: start: 20140317

REACTIONS (3)
  - Alopecia totalis [Not Recovered/Not Resolved]
  - Alopecia areata [Not Recovered/Not Resolved]
  - Madarosis [Not Recovered/Not Resolved]

NARRATIVE: CASE EVENT DATE: 20140301
